FAERS Safety Report 5000412-1 (Version None)
Quarter: 2006Q2

REPORT INFORMATION
  Report Type: 
  Country: None (occurrence: None)
  Receive Date: 20060511
  Receipt Date: 20060322
  Transmission Date: 20061013
  Serious: Yes (Death, Hospitalization)
  Sender: FDA-Public Use
  Company Number: US-MERCK-0603USA03563

PATIENT
  Age: 77 Year
  Sex: Female
  Weight: 59 kg

DRUGS (8)
  1. VIOXX [Suspect]
     Indication: ARTHRITIS
     Route: 048
     Dates: start: 20000101, end: 20010901
  2. VIOXX [Suspect]
     Route: 048
     Dates: start: 20000101, end: 20010901
  3. TOPROL-XL [Concomitant]
     Route: 048
  4. PROZAC [Concomitant]
     Route: 048
  5. PREMARIN [Concomitant]
     Route: 048
  6. XANAX [Concomitant]
     Route: 048
  7. HYDROCHLOROTHIAZIDE [Concomitant]
     Route: 048
  8. VICODIN [Concomitant]
     Indication: BACK PAIN
     Route: 048

REACTIONS (14)
  - CARDIAC DISORDER [None]
  - CEREBROVASCULAR DISORDER [None]
  - CHOLELITHIASIS [None]
  - DIZZINESS [None]
  - EAR INFECTION [None]
  - FALL [None]
  - HEAD INJURY [None]
  - HIP FRACTURE [None]
  - HYPERCHOLESTEROLAEMIA [None]
  - IIIRD NERVE PARESIS [None]
  - ISCHAEMIC STROKE [None]
  - MASS [None]
  - PRESCRIBED OVERDOSE [None]
  - PULMONARY MASS [None]
